FAERS Safety Report 8661187 (Version 2)
Quarter: 2013Q4

REPORT INFORMATION
  Report Type: Spontaneous
  Country: US (occurrence: US)
  Receive Date: 20120711
  Receipt Date: 20131101
  Transmission Date: 20140711
  Serious: No
  Sender: FDA-Public Use
  Company Number: US-009507513-1206USA04704

PATIENT
  Age: 44 Year
  Sex: Female

DRUGS (2)
  1. ISENTRESS [Suspect]
     Indication: HIV INFECTION
     Dosage: 400 MG, BID
     Route: 048
     Dates: start: 20120608, end: 20120614
  2. METHADONE HYDROCHLORIDE [Concomitant]

REACTIONS (1)
  - Withdrawal syndrome [Recovered/Resolved]
